FAERS Safety Report 7484879-5 (Version None)
Quarter: 2011Q2

REPORT INFORMATION
  Report Type: 
  Country: None (occurrence: None)
  Receive Date: 20110517
  Receipt Date: 20110503
  Transmission Date: 20111010
  Serious: Yes (Hospitalization)
  Sender: FDA-Public Use
  Company Number: A0889202A

PATIENT
  Age: 48 Year
  Sex: Female
  Weight: 116.8 kg

DRUGS (6)
  1. LIPITOR [Concomitant]
  2. COZAAR [Concomitant]
  3. TOPROL-XL [Concomitant]
  4. AVANDIA [Suspect]
     Dosage: 8MG PER DAY
     Route: 048
     Dates: start: 20030101, end: 20060101
  5. METFORMIN HCL [Concomitant]
  6. INSULIN [Concomitant]

REACTIONS (2)
  - CARDIAC FAILURE CONGESTIVE [None]
  - STENT PLACEMENT [None]
